FAERS Safety Report 11846896 (Version 1)
Quarter: 2015Q4

REPORT INFORMATION
  Report Type: Spontaneous
  Country: US (occurrence: US)
  Receive Date: 20151217
  Receipt Date: 20151217
  Transmission Date: 20160305
  Serious: No
  Sender: FDA-Public Use
  Company Number: US-ROCHE-1559498

PATIENT
  Age: 46 Year
  Sex: Female

DRUGS (3)
  1. TAMIFLU [Suspect]
     Active Substance: OSELTAMIVIR PHOSPHATE
     Indication: INFLUENZA
     Dosage: FOR 5 DAYS
     Route: 048
     Dates: start: 20150301, end: 20150303
  2. CODEINE PHOSPHATE/GUAIFENESIN [Concomitant]
     Route: 048
  3. BENZONATATE. [Concomitant]
     Active Substance: BENZONATATE
     Route: 048

REACTIONS (3)
  - Hyporeflexia [Recovered/Resolved]
  - Aphonia [Recovered/Resolved]
  - Road traffic accident [Unknown]

NARRATIVE: CASE EVENT DATE: 20150301
